FAERS Safety Report 9131739 (Version 2)
Quarter: 2013Q2

REPORT INFORMATION
  Report Type: Report from Study
  Country: DE (occurrence: DE)
  Receive Date: 20130301
  Receipt Date: 20130506
  Transmission Date: 20140414
  Serious: Yes (Hospitalization)
  Sender: FDA-Public Use
  Company Number: DE-ABBOTT-13P-062-1053366-00

PATIENT
  Age: 62 Year
  Sex: Male

DRUGS (5)
  1. HUMIRA [Suspect]
     Indication: RHEUMATOID ARTHRITIS
     Route: 058
     Dates: start: 20100825, end: 201109
  2. HUMIRA [Suspect]
     Route: 058
     Dates: start: 201111, end: 20111212
  3. LEFLUNOMIDE [Concomitant]
     Indication: PRODUCT USED FOR UNKNOWN INDICATION
  4. NSAID, COXIBE [Concomitant]
     Indication: PRODUCT USED FOR UNKNOWN INDICATION
  5. GLUCOCORTICOIDS [Concomitant]
     Indication: PRODUCT USED FOR UNKNOWN INDICATION

REACTIONS (2)
  - Nephrolithiasis [Recovered/Resolved]
  - Vertigo [Unknown]
